FAERS Safety Report 21653445 (Version 3)
Quarter: 2022Q4

REPORT INFORMATION
  Report Type: Spontaneous
  Country: US (occurrence: US)
  Receive Date: 20221128
  Receipt Date: 20221212
  Transmission Date: 20230113
  Serious: Yes (Other)
  Sender: FDA-Public Use
  Company Number: US-BAUSCHBL-2022BNL002223

PATIENT
  Age: 83 Year
  Sex: Female
  Weight: 86.260 kg

DRUGS (2)
  1. WATER [Suspect]
     Active Substance: WATER
     Indication: Eye irrigation
     Dosage: ONLY USED ONCE
     Route: 047
     Dates: start: 20221108, end: 20221108
  2. BACITRACIN ZINC AND POLYMYXIN B SULFATE [Suspect]
     Active Substance: BACITRACIN ZINC\POLYMYXIN B SULFATE
     Indication: Eye injury
     Route: 047
     Dates: start: 20221118

REACTIONS (8)
  - Visual impairment [Not Recovered/Not Resolved]
  - Eye injury [Unknown]
  - Asthenopia [Not Recovered/Not Resolved]
  - Instillation site irritation [Unknown]
  - Eye disorder [Unknown]
  - Instillation site lacrimation [Unknown]
  - Instillation site pain [Not Recovered/Not Resolved]
  - Instillation site pruritus [Not Recovered/Not Resolved]

NARRATIVE: CASE EVENT DATE: 20221108
